FAERS Safety Report 5674876-4 (Version None)
Quarter: 2008Q1

REPORT INFORMATION
  Report Type: 
  Country: None (occurrence: None)
  Receive Date: 20080320
  Receipt Date: 20080318
  Transmission Date: 20080703
  Serious: Yes (Congenital Anomaly)
  Sender: FDA-Public Use
  Company Number: JP-ASTRAZENECA-2008AP02011

PATIENT
  Age: 50 Year
  Sex: Male

DRUGS (2)
  1. OMEPRAL INJECTION [Suspect]
     Indication: GASTRODUODENAL ULCER
     Route: 041
     Dates: start: 20080122
  2. OMEPRAL TABLETS 10MG [Suspect]
     Indication: PYLORIC STENOSIS
     Route: 048

REACTIONS (1)
  - BLOOD GASTRIN INCREASED [None]
